FAERS Safety Report 6534414-0 (Version None)
Quarter: 2010Q1

REPORT INFORMATION
  Report Type: 
  Country: None (occurrence: None)
  Receive Date: 20100112
  Receipt Date: 20091201
  Transmission Date: 20100710
  Serious: Yes (Hospitalization, Other)
  Sender: FDA-Public Use
  Company Number: US-BAXTER-2009BH012309

PATIENT
  Age: 56 Year
  Sex: Male
  Weight: 108 kg

DRUGS (11)
  1. HEPARIN SODIUM INJECTION [Suspect]
     Indication: PROTEIN S DEFICIENCY
     Route: 058
     Dates: start: 20071206, end: 20071210
  2. HEPARIN SODIUM INJECTION [Suspect]
     Route: 058
     Dates: start: 20071206, end: 20071210
  3. HEPARIN SODIUM INJECTION [Suspect]
     Route: 058
     Dates: start: 20071212, end: 20071214
  4. HEPARIN SODIUM INJECTION [Suspect]
     Route: 058
     Dates: start: 20071212, end: 20071214
  5. HEPARIN SODIUM INJECTION [Suspect]
     Route: 058
     Dates: start: 20080118, end: 20080121
  6. HEPARIN SODIUM INJECTION [Suspect]
     Route: 058
     Dates: start: 20080118, end: 20080121
  7. HEPARIN SODIUM INJECTION [Suspect]
     Route: 058
     Dates: start: 20080124, end: 20080128
  8. HEPARIN SODIUM INJECTION [Suspect]
     Route: 058
     Dates: start: 20080124, end: 20080128
  9. WARFARIN [Concomitant]
     Indication: DRUG USE FOR UNKNOWN INDICATION
     Route: 065
  10. BACTRIM [Concomitant]
     Indication: DRUG USE FOR UNKNOWN INDICATION
     Route: 065
  11. COLACE [Concomitant]
     Indication: DRUG USE FOR UNKNOWN INDICATION
     Route: 065

REACTIONS (15)
  - ABDOMINAL PAIN [None]
  - ASTHENIA [None]
  - DEEP VEIN THROMBOSIS [None]
  - ECCHYMOSIS [None]
  - FATIGUE [None]
  - HAEMATURIA [None]
  - HYPOAESTHESIA [None]
  - HYPOTENSION [None]
  - NAUSEA [None]
  - OEDEMA PERIPHERAL [None]
  - PAIN IN EXTREMITY [None]
  - PLATELET COUNT DECREASED [None]
  - RENAL FAILURE ACUTE [None]
  - SKIN DISCOLOURATION [None]
  - SYNCOPE [None]
